FAERS Safety Report 5771805-X (Version None)
Quarter: 2008Q2

REPORT INFORMATION
  Report Type: 
  Country: None (occurrence: None)
  Receive Date: 20080613
  Receipt Date: 20080613
  Transmission Date: 20081010
  Serious: Yes (Life-Threatening, Hospitalization)
  Sender: FDA-Public Use
  Company Number: None

PATIENT
  Sex: Female
  Weight: 67 kg

DRUGS (3)
  1. PALONESETRON 0.25MG MGI PHARMA [Suspect]
     Indication: GLIOBLASTOMA MULTIFORME
     Dosage: 0.25MG IV Q2 WEEKS
     Route: 042
     Dates: start: 20080424
  2. PALONESETRON 0.25MG MGI PHARMA [Suspect]
     Indication: GLIOBLASTOMA MULTIFORME
     Dosage: 0.25MG IV Q2 WEEKS
     Route: 042
     Dates: start: 20080508
  3. PALONESETRON 0.25MG MGI PHARMA [Suspect]
     Indication: GLIOBLASTOMA MULTIFORME
     Dosage: 0.25MG IV Q2 WEEKS
     Route: 042
     Dates: start: 20080529

REACTIONS (3)
  - HYPOTENSION [None]
  - PYREXIA [None]
  - SEPSIS [None]
